FAERS Safety Report 9644578 (Version 4)
Quarter: 2013Q4

REPORT INFORMATION
  Report Type: Spontaneous
  Country: GB (occurrence: GB)
  Receive Date: 20131025
  Receipt Date: 20131112
  Transmission Date: 20140711
  Serious: Yes (Hospitalization)
  Sender: FDA-Public Use
  Company Number: GB-RANBAXY-2013R1-74567

PATIENT
  Age: 58 Year
  Sex: Male
  Weight: 94 kg

DRUGS (5)
  1. CO-CODAMOL [Suspect]
     Indication: PSORIATIC ARTHROPATHY
     Dosage: UNK, QD
     Route: 048
  2. LANSOPRAZOLE [Suspect]
     Indication: GASTROOESOPHAGEAL REFLUX DISEASE
     Dosage: 15 MG, QD
     Route: 048
  3. ARCOXIA [Suspect]
     Indication: PSORIATIC ARTHROPATHY
     Dosage: 90 MG, QD
     Route: 048
  4. GOLIMUMAB [Suspect]
     Indication: PSORIATIC ARTHROPATHY
     Dosage: 50 MG, MONTHLY
     Route: 058
     Dates: start: 201207
  5. GOLIMUMAB [Suspect]
     Indication: PSORIATIC ARTHROPATHY
     Dosage: UNK
     Route: 058
     Dates: start: 20120824

REACTIONS (1)
  - Allodynia [Recovering/Resolving]
